FAERS Safety Report 7123991-7 (Version None)
Quarter: 2010Q4

REPORT INFORMATION
  Report Type: 
  Country: None (occurrence: None)
  Receive Date: 20101126
  Receipt Date: 20101116
  Transmission Date: 20110411
  Serious: No
  Sender: FDA-Public Use
  Company Number: US-PFIZER INC-2010154249

PATIENT
  Sex: Male
  Weight: 99.79 kg

DRUGS (8)
  1. PRISTIQ [Suspect]
     Indication: DEPRESSION
     Dosage: 100 MG DAILY
     Dates: start: 20101107
  2. PRISTIQ [Suspect]
     Indication: OBSESSIVE-COMPULSIVE DISORDER
  3. EFFEXOR XR [Suspect]
     Indication: DEPRESSION
     Dosage: 150 MG DAILY
  4. EFFEXOR XR [Suspect]
     Indication: OBSESSIVE-COMPULSIVE DISORDER
     Dosage: 450 MG DAILY
     Dates: end: 20101116
  5. ABILIFY [Concomitant]
     Dosage: UNK
  6. ADDERALL 10 [Concomitant]
     Dosage: ONE IN THE MORNING; ONE DOSE AT LUNCH TIME
  7. CRESTOR [Concomitant]
     Dosage: UNK
  8. TAMSULOSIN [Concomitant]
     Dosage: UNK

REACTIONS (2)
  - AGITATION [None]
  - WITHDRAWAL SYNDROME [None]
